FAERS Safety Report 9476872 (Version 2)
Quarter: 2013Q3

REPORT INFORMATION
  Report Type: Spontaneous
  Country: MX (occurrence: MX)
  Receive Date: 20130826
  Receipt Date: 20130905
  Transmission Date: 20140515
  Serious: Yes (Other)
  Sender: FDA-Public Use
  Company Number: MX-ELI_LILLY_AND_COMPANY-MX201308005977

PATIENT
  Age: 70 Year
  Sex: Female

DRUGS (3)
  1. FORTEO [Suspect]
     Dosage: UNK, QD
     Dates: start: 201307, end: 20130810
  2. CALCITRIOL [Concomitant]
  3. CELECOXIB [Concomitant]
     Indication: ARTHRALGIA

REACTIONS (2)
  - Gastric ulcer haemorrhage [Recovered/Resolved]
  - Faeces discoloured [Unknown]
